FAERS Safety Report 17662571 (Version 1)
Quarter: 2020Q2

REPORT INFORMATION
  Report Type: Spontaneous
  Country: GB (occurrence: GB)
  Receive Date: 20200413
  Receipt Date: 20200413
  Transmission Date: 20200713
  Serious: Yes (Hospitalization)
  Sender: FDA-Public Use
  Company Number: GB-PFIZER INC-2020143271

PATIENT
  Age: 79 Year
  Sex: Male

DRUGS (11)
  1. OMEPRAZOLE. [Concomitant]
     Active Substance: OMEPRAZOLE
     Dosage: 20 MG, 1X/DAY
     Route: 048
  2. QUININE SULFATE. [Concomitant]
     Active Substance: QUININE SULFATE
     Dosage: AT NIGHT
     Route: 048
  3. ALLOPURINOL. [Concomitant]
     Active Substance: ALLOPURINOL
     Dosage: 200 MG, 1X/DAY
     Route: 048
  4. METFORMIN [Concomitant]
     Active Substance: METFORMIN HYDROCHLORIDE
     Dosage: 2 G, 1X/DAY
     Route: 048
  5. DALTEPARIN SODIUM [Suspect]
     Active Substance: DALTEPARIN SODIUM
     Indication: PULMONARY EMBOLISM
     Dosage: 18,000UNITS/0.72ML
     Route: 058
     Dates: start: 20200214, end: 20200305
  6. CARBOPLATIN. [Concomitant]
     Active Substance: CARBOPLATIN
     Dosage: CYCLE 4
     Route: 042
     Dates: end: 20200225
  7. CAPECITABINE. [Concomitant]
     Active Substance: CAPECITABINE
     Dosage: 3000 MG, 1X/DAY CYCLE 4
     Route: 048
     Dates: start: 20200221, end: 20200309
  8. GLICLAZIDE [Concomitant]
     Active Substance: GLICLAZIDE
     Dosage: 320 MG, 1X/DAY
     Route: 048
  9. VILANTEROL [Concomitant]
     Active Substance: VILANTEROL TRIFENATATE
     Dosage: FLUTICASONE FUROATE 92MICROGRAMS/DOSE / VILANTEROL22MICROGRAMS/DOSE
  10. FLUTICASONE FUROATE [Concomitant]
     Active Substance: FLUTICASONE FUROATE
     Dosage: FLUTICASONE FUROATE 92MICROGRAMS/DOSE / VILANTEROL22MICROGRAMS/DOSE
  11. PARACETAMOL [Concomitant]
     Active Substance: ACETAMINOPHEN
     Dosage: 1-2 FOUR TIMES DAILY
     Route: 048

REACTIONS (4)
  - Dyspnoea [Unknown]
  - Condition aggravated [Unknown]
  - Cardiac arrest [Unknown]
  - Heparin-induced thrombocytopenia [Recovered/Resolved]

NARRATIVE: CASE EVENT DATE: 20200305
